FAERS Safety Report 11528267 (Version 1)
Quarter: 2015Q3

REPORT INFORMATION
  Report Type: Spontaneous
  Country: US (occurrence: US)
  Receive Date: 20150921
  Receipt Date: 20150921
  Transmission Date: 20151125
  Serious: No
  Sender: FDA-Public Use
  Company Number: US-ACTELION PHARMACEUTICALS US, INC.-A-NJ2014-108442

PATIENT
  Age: 79 Year
  Sex: Female

DRUGS (6)
  1. ASPIRIN E.C [Concomitant]
     Active Substance: ASPIRIN
     Dosage: UNK
     Dates: start: 20130220
  2. VENTAVIS [Suspect]
     Active Substance: ILOPROST
     Indication: PULMONARY ARTERIAL HYPERTENSION
     Dosage: 6-9X/DAY (RED)
     Route: 055
     Dates: start: 20141016
  3. LASIX [Concomitant]
     Active Substance: FUROSEMIDE
  4. VENTAVIS [Suspect]
     Active Substance: ILOPROST
     Dosage: 5 MCG, QID (PURPLE)
     Route: 055
     Dates: end: 201501
  5. ADCIRCA [Concomitant]
     Active Substance: TADALAFIL
     Dosage: 40 MG, QD
     Dates: start: 20141003
  6. VENTAVIS [Suspect]
     Active Substance: ILOPROST
     Dosage: 5 MCG,  6-9 X/DAY(PURPLE)
     Route: 055
     Dates: start: 20150112

REACTIONS (6)
  - Hypotension [Unknown]
  - Productive cough [Unknown]
  - Somnolence [Unknown]
  - Fatigue [Unknown]
  - Peripheral swelling [Unknown]
  - Arthritis [Unknown]

NARRATIVE: CASE EVENT DATE: 20141111
